FAERS Safety Report 7459715-3 (Version None)
Quarter: 2011Q2

REPORT INFORMATION
  Report Type: 
  Country: None (occurrence: None)
  Receive Date: 20110505
  Receipt Date: 20110420
  Transmission Date: 20111010
  Serious: Yes (Death)
  Sender: FDA-Public Use
  Company Number: IT-CELGENEUS-083-C5013-11031325

PATIENT
  Sex: Male

DRUGS (23)
  1. PROSCAR [Concomitant]
     Dosage: 1 TABLET
     Route: 048
     Dates: start: 20060101, end: 20110213
  2. CALCIUM [Concomitant]
     Indication: PROPHYLAXIS
     Dosage: 1 TABLET
     Route: 048
     Dates: start: 20100422, end: 20110307
  3. CALCIUM [Concomitant]
     Route: 048
     Dates: start: 20110308, end: 20110319
  4. CARVEDILOL [Concomitant]
     Indication: MITRAL VALVE DISEASE
     Dosage: 6.25 MILLIGRAM
     Route: 048
     Dates: start: 20100507, end: 20110213
  5. TRIATEC [Concomitant]
     Route: 048
     Dates: start: 20110214, end: 20110319
  6. MEPRAL [Concomitant]
     Indication: INTESTINAL OBSTRUCTION
     Dosage: 1 TABLET
     Route: 048
     Dates: start: 20110214, end: 20110219
  7. URBASON [Concomitant]
     Indication: PROPHYLAXIS
     Dosage: 40 MILLIGRAM
     Route: 051
     Dates: start: 20110217, end: 20110217
  8. DEXAMETHASONE [Suspect]
     Indication: MULTIPLE MYELOMA
     Dosage: 40 MILLIGRAM
     Route: 065
     Dates: start: 20081121
  9. CLINIMIX 2.75/10 SULFITE FREE IN DEXTROSE 10% [Concomitant]
     Indication: INTESTINAL OBSTRUCTION
     Dosage: 1 BAG
     Route: 051
     Dates: start: 20110216, end: 20110217
  10. LENALIDOMIDE [Suspect]
     Indication: MULTIPLE MYELOMA
     Dosage: 10 MILLIGRAM
     Route: 048
     Dates: start: 20081121
  11. TRIATEC [Concomitant]
     Indication: CARDIOMYOPATHY
     Dosage: 2.5 MILLIGRAM
     Route: 048
     Dates: start: 20100513, end: 20110213
  12. LASIX [Concomitant]
     Indication: PROPHYLAXIS
     Dosage: 25 MILLIGRAM
     Route: 048
     Dates: start: 20100511, end: 20110213
  13. LORAZEPAM [Concomitant]
     Route: 048
     Dates: start: 20110214, end: 20110319
  14. PROSCAR [Concomitant]
     Route: 048
     Dates: start: 20110214, end: 20110319
  15. CARVEDILOL [Concomitant]
     Route: 048
     Dates: start: 20110214, end: 20110319
  16. DEXAMETHASONE [Suspect]
     Dosage: 40 MILLIGRAM
     Route: 065
     Dates: start: 20100318, end: 20100414
  17. LORAZEPAM [Concomitant]
     Indication: PROPHYLAXIS
     Dosage: 20 DROPS
     Route: 048
     Dates: start: 20090506, end: 20110213
  18. ENOXAPARIN SODIUM [Concomitant]
     Indication: THROMBOSIS PROPHYLAXIS
     Dosage: 1 VIAL
     Route: 058
     Dates: start: 20110301, end: 20110318
  19. KANRENOL [Concomitant]
     Indication: PROPHYLAXIS
     Dosage: 25 MILLIGRAM
     Route: 048
     Dates: start: 20100507, end: 20110316
  20. LENALIDOMIDE [Suspect]
     Dosage: 15 MILLIGRAM
     Route: 048
     Dates: start: 20100318, end: 20100407
  21. LEVOBREN [Concomitant]
     Indication: DYSPEPSIA
     Dosage: 25 MILLIGRAM
     Route: 048
     Dates: start: 20090103, end: 20110312
  22. LASIX [Concomitant]
     Route: 048
     Dates: start: 20110214, end: 20110319
  23. GRANULOCYTE [Concomitant]
     Indication: NEUTROPENIA
     Dosage: 1 VIAL
     Route: 058
     Dates: start: 20110223, end: 20110223

REACTIONS (1)
  - MALIGNANT PERITONEAL NEOPLASM [None]
